FAERS Safety Report 15515353 (Version 2)
Quarter: 2019Q1

REPORT INFORMATION
  Report Type: Spontaneous
  Country: US (occurrence: US)
  Receive Date: 20181017
  Receipt Date: 20190117
  Transmission Date: 20190417
  Serious: No
  Sender: FDA-Public Use
  Company Number: US-SAREPTA THERAPEUTICS, INC-SRP-000134-2018

PATIENT
  Age: 14 Year
  Sex: Male
  Weight: 55.1 kg

DRUGS (1)
  1. EXONDYS 51 [Suspect]
     Active Substance: ETEPLIRSEN
     Indication: DUCHENNE MUSCULAR DYSTROPHY
     Dosage: 1440 MG (30 MG/KG), UNK
     Route: 065
     Dates: start: 20170504

REACTIONS (1)
  - Gastrointestinal viral infection [Recovered/Resolved]

NARRATIVE: CASE EVENT DATE: 20180716
